FAERS Safety Report 22001408 (Version 3)
Quarter: 2023Q1

REPORT INFORMATION
  Report Type: Spontaneous
  Country: FR (occurrence: FR)
  Receive Date: 20230216
  Receipt Date: 20230317
  Transmission Date: 20230417
  Serious: Yes (Death, Other)
  Sender: FDA-Public Use
  Company Number: FR-INCYTE CORPORATION-2022IN008623

PATIENT
  Sex: Female
  Weight: 38 kg

DRUGS (3)
  1. PAXLOVID [Suspect]
     Active Substance: NIRMATRELVIR\RITONAVIR
     Indication: COVID-19 treatment
     Dosage: UNK
     Route: 065
  2. TAFASITAMAB [Suspect]
     Active Substance: TAFASITAMAB
     Indication: Diffuse large B-cell lymphoma
     Dosage: 12 MG/KG (440 MG)
     Route: 042
     Dates: start: 20220124, end: 20220407
  3. BACTRIM [Concomitant]
     Active Substance: SULFAMETHOXAZOLE\TRIMETHOPRIM
     Indication: Prophylaxis
     Dosage: UNK
     Route: 065

REACTIONS (7)
  - Drug ineffective [Fatal]
  - Sepsis [Fatal]
  - Respiratory failure [Fatal]
  - Deafness [Unknown]
  - General physical health deterioration [Unknown]
  - Viral infection [Unknown]
  - Immune system disorder [Unknown]

NARRATIVE: CASE EVENT DATE: 20220301
